FAERS Safety Report 5069135-7 (Version None)
Quarter: 2006Q3

REPORT INFORMATION
  Report Type: 
  Country: None (occurrence: None)
  Receive Date: 20060731
  Receipt Date: 20060718
  Transmission Date: 20061208
  Serious: Yes (Other)
  Sender: FDA-Public Use
  Company Number: GXKR2006US04156

PATIENT
  Age: 15 Year
  Sex: Male
  Weight: 55.5 kg

DRUGS (9)
  1. METHOTREXATE [Suspect]
     Indication: ACUTE LYMPHOCYTIC LEUKAEMIA
     Dosage: SEE IMAGE
  2. VINCRISTINE [Suspect]
     Indication: ACUTE LYMPHOCYTIC LEUKAEMIA
  3. DEXAMETHASONE [Suspect]
     Indication: ACUTE LYMPHOCYTIC LEUKAEMIA
  4. DOXORUBICIN HCL [Concomitant]
  5. MERCAPTOPURINE (MERCAPTOPURINE) [Suspect]
     Indication: ACUTE LYMPHOCYTIC LEUKAEMIA
  6. CYCLOPHOSPHAMIDE [Suspect]
     Indication: ACUTE LYMPHOCYTIC LEUKAEMIA
  7. ELSPAR [Suspect]
     Indication: ACUTE LYMPHOCYTIC LEUKAEMIA
  8. CYTARABINE [Suspect]
     Indication: ACUTE LYMPHOCYTIC LEUKAEMIA
  9. THIOGUANINE (THIOGUANINE)` [Suspect]
     Indication: ACUTE LYMPHOCYTIC LEUKAEMIA

REACTIONS (4)
  - BLOOD LUTEINISING HORMONE DECREASED [None]
  - EPIPHYSIOLYSIS [None]
  - GROWTH HORMONE DEFICIENCY [None]
  - INSULIN-LIKE GROWTH FACTOR DECREASED [None]
